FAERS Safety Report 19011609 (Version 1)
Quarter: 2021Q1

REPORT INFORMATION
  Report Type: Spontaneous
  Country: US (occurrence: US)
  Receive Date: 20210315
  Receipt Date: 20210315
  Transmission Date: 20210420
  Serious: No
  Sender: FDA-Public Use
  Company Number: None

PATIENT
  Age: 38 Year
  Sex: Female

DRUGS (1)
  1. HYDROXYPROGEST SDV 250MG/ML [Suspect]
     Active Substance: HYDROXYPROGESTERONE CAPROATE
     Indication: PREMATURE LABOUR
     Route: 030
     Dates: start: 20210203, end: 20210212

REACTIONS (4)
  - Abortion spontaneous [None]
  - Maternal exposure during pregnancy [None]
  - Foetal exposure during pregnancy [None]
  - Foetal heart rate abnormal [None]

NARRATIVE: CASE EVENT DATE: 20210212
